FAERS Safety Report 9363739 (Version 1)
Quarter: 2013Q2

REPORT INFORMATION
  Report Type: Spontaneous
  Country: PT (occurrence: PT)
  Receive Date: 20130624
  Receipt Date: 20130624
  Transmission Date: 20140414
  Serious: Yes (Other)
  Sender: FDA-Public Use
  Company Number: PT-ASTELLAS-2013EU004920

PATIENT
  Age: 42 Year
  Sex: Female

DRUGS (4)
  1. TACROLIMUS SYSTEMIC [Suspect]
     Indication: RENAL TRANSPLANT
     Dosage: UNK
     Route: 065
  2. MYCOPHENOLATE MOFETIL [Concomitant]
     Indication: RENAL TRANSPLANT
     Dosage: UNK
     Route: 065
  3. PREDNISOLON                        /00016201/ [Concomitant]
     Indication: RENAL TRANSPLANT
     Dosage: UNK
     Route: 065
  4. PREDNISOLON                        /00016201/ [Concomitant]
     Dosage: 5 MG, UNKNOWN/D
     Route: 065
     Dates: start: 2010

REACTIONS (2)
  - Crohn^s disease [Unknown]
  - Urinary tract infection [Unknown]
